FAERS Safety Report 5944533-5 (Version None)
Quarter: 2008Q4

REPORT INFORMATION
  Report Type: 
  Country: None (occurrence: None)
  Receive Date: 20081107
  Receipt Date: 20081106
  Transmission Date: 20090506
  Serious: Yes (Hospitalization)
  Sender: FDA-Public Use
  Company Number: NL-BRISTOL-MYERS SQUIBB COMPANY-14396865

PATIENT
  Age: 84 Year
  Sex: Female

DRUGS (3)
  1. COAPROVEL FILM-COATED TABS 300/12.5 MG [Suspect]
     Indication: HYPERTENSION
     Dosage: 1 DOSAGE FORM = 300/12.5 MG
     Dates: start: 20040405, end: 20080803
  2. ESOMEPRAZOLE MAGNESIUM [Concomitant]
  3. METOPROLOL TARTRATE [Concomitant]

REACTIONS (1)
  - ORGANISING PNEUMONIA [None]
